FAERS Safety Report 5740148-2 (Version None)
Quarter: 2008Q2

REPORT INFORMATION
  Report Type: 
  Country: None (occurrence: None)
  Receive Date: 20080516
  Receipt Date: 20080418
  Transmission Date: 20081010
  Serious: Yes (Other)
  Sender: FDA-Public Use
  Company Number: JP-ROCHE-552052

PATIENT
  Sex: Female

DRUGS (14)
  1. TAMIFLU [Suspect]
     Indication: INFLUENZA
     Route: 048
     Dates: start: 20080301, end: 20080301
  2. TAMIFLU [Suspect]
     Route: 048
     Dates: start: 20080302, end: 20080302
  3. CLARITHROMYCIN [Concomitant]
     Route: 048
     Dates: start: 20080301
  4. BIOFERMIN [Concomitant]
     Route: 048
     Dates: start: 20080301
  5. BIOFERMIN [Concomitant]
     Route: 048
     Dates: start: 20080301
  6. BIOFERMIN [Concomitant]
     Route: 048
     Dates: start: 20080301
  7. MEDICON [Concomitant]
     Route: 048
     Dates: start: 20080301
  8. TRANEXAMIC ACID [Concomitant]
     Dosage: DRUG NAME: PLETASMIN. FORM: FINE GRANULE.
     Route: 048
     Dates: start: 20080301
  9. HUSTAGIN [Concomitant]
     Route: 048
     Dates: start: 20080301
  10. PA [Concomitant]
     Route: 048
     Dates: start: 20080301
  11. PA [Concomitant]
     Route: 048
     Dates: start: 20080301
  12. PA [Concomitant]
     Route: 048
     Dates: start: 20080301
  13. PA [Concomitant]
     Route: 048
     Dates: start: 20080301
  14. MAO-TO [Concomitant]
     Dosage: FORM: ORAL FORMULATION (NOT OTHERWISE SPECIFIED)
     Route: 048
     Dates: start: 20080301

REACTIONS (1)
  - DEPRESSION [None]
